FAERS Safety Report 18978987 (Version 1)
Quarter: 2021Q1

REPORT INFORMATION
  Report Type: Spontaneous
  Country: IE (occurrence: IE)
  Receive Date: 20210308
  Receipt Date: 20210308
  Transmission Date: 20210420
  Serious: Yes (Other)
  Sender: FDA-Public Use
  Company Number: IE-ORGANON-O2103IRL000429

PATIENT
  Age: 70 Year
  Sex: Male

DRUGS (3)
  1. ROSUVASTATIN CALCIUM. [Suspect]
     Active Substance: ROSUVASTATIN CALCIUM
     Indication: HYPERCHOLESTEROLAEMIA
     Dosage: 40 MG, QD
  2. EZETIMIBE. [Suspect]
     Active Substance: EZETIMIBE
     Indication: ACUTE CORONARY SYNDROME
     Dosage: 10 MG
  3. SUVEZEN [Suspect]
     Active Substance: EZETIMIBE\ROSUVASTATIN
     Indication: ACUTE CORONARY SYNDROME
     Dosage: UNK

REACTIONS (2)
  - Off label use [Unknown]
  - Acute coronary syndrome [Unknown]
